FAERS Safety Report 5661579-5 (Version None)
Quarter: 2008Q1

REPORT INFORMATION
  Report Type: 
  Country: None (occurrence: None)
  Receive Date: 20080312
  Receipt Date: 20080305
  Transmission Date: 20080703
  Serious: Yes (Hospitalization, Other)
  Sender: FDA-Public Use
  Company Number: PHHY2008BR02785

PATIENT
  Age: 29 Year
  Sex: Female
  Weight: 60 kg

DRUGS (1)
  1. FORASEQ [Suspect]
     Indication: ASTHMA
     Dosage: 1 UNK, QOD

REACTIONS (4)
  - ASTHMA [None]
  - PAIN IN EXTREMITY [None]
  - SKIN DISCOLOURATION [None]
  - THROMBOSIS [None]
